FAERS Safety Report 21740184 (Version 1)
Quarter: 2022Q4

REPORT INFORMATION
  Report Type: Spontaneous
  Country: JP (occurrence: JP)
  Receive Date: 20221216
  Receipt Date: 20221216
  Transmission Date: 20230112
  Serious: No
  Sender: FDA-Public Use
  Company Number: JP-PFIZER INC-202201366266

PATIENT
  Sex: Female

DRUGS (3)
  1. PAXLOVID [Suspect]
     Active Substance: NIRMATRELVIR\RITONAVIR
     Indication: COVID-19 treatment
     Dosage: TOOK TWICE AMOUNT, IN THE MORNING AND EVENING, FOR 2 DAYS
     Route: 048
  2. TRANEXAMIC ACID [Concomitant]
     Active Substance: TRANEXAMIC ACID
     Indication: Oropharyngeal pain
     Route: 048
  3. LACTIC ACID [Concomitant]
     Active Substance: LACTIC ACID
     Route: 048

REACTIONS (4)
  - Dysgeusia [Unknown]
  - Oral discomfort [Unknown]
  - Thirst [Unknown]
  - Product use complaint [Unknown]
